FAERS Safety Report 7828982-6 (Version None)
Quarter: 2011Q4

REPORT INFORMATION
  Report Type: 
  Country: None (occurrence: None)
  Receive Date: 20111020
  Receipt Date: 20111013
  Transmission Date: 20120403
  Serious: Yes (Other)
  Sender: FDA-Public Use
  Company Number: US-BAYER-2011-100239

PATIENT
  Age: 37 Year
  Sex: Female
  Weight: 59 kg

DRUGS (4)
  1. MULTI-VITAMIN [Concomitant]
  2. PERMETHRIN [Suspect]
  3. RID 1-2-3 SYSTEM [Suspect]
     Indication: LICE INFESTATION
     Dosage: ON DAY1 AND DAY10
     Route: 061
     Dates: start: 20110927, end: 20111008
  4. ZANTAC [Concomitant]

REACTIONS (6)
  - URTICARIA [None]
  - JOINT SWELLING [None]
  - OEDEMA PERIPHERAL [None]
  - PRURITUS [None]
  - HYPERSENSITIVITY [None]
  - ABDOMINAL DISTENSION [None]
